FAERS Safety Report 8241576-6 (Version None)
Quarter: 2012Q1

REPORT INFORMATION
  Report Type: 
  Country: None (occurrence: None)
  Receive Date: 20120328
  Receipt Date: 20120321
  Transmission Date: 20120608
  Serious: Yes (Other)
  Sender: FDA-Public Use
  Company Number: US-PFIZER INC-2012060782

PATIENT
  Sex: Female

DRUGS (5)
  1. LASIX [Concomitant]
     Dosage: UNK
  2. REVATIO [Suspect]
     Dosage: 10 MG, 3X/DAY
     Route: 048
  3. ACETYLSALICYLIC ACID [Concomitant]
     Dosage: UNK
  4. REVATIO [Suspect]
     Indication: PULMONARY HYPERTENSION
     Dosage: 20 MG, 3X/DAY
     Route: 048
     Dates: start: 20111219
  5. DIGOXIN [Concomitant]
     Dosage: UNK

REACTIONS (2)
  - VISION BLURRED [None]
  - XANTHOPSIA [None]
